FAERS Safety Report 6180108-3 (Version None)
Quarter: 2009Q2

REPORT INFORMATION
  Report Type: 
  Country: None (occurrence: None)
  Receive Date: 20090505
  Receipt Date: 20080418
  Transmission Date: 20091009
  Serious: No
  Sender: FDA-Public Use
  Company Number: CN-BAYER-200810281GPV

PATIENT
  Age: 72 Year
  Sex: Female

DRUGS (1)
  1. ULTRAVIST 300 [Suspect]
     Indication: COMPUTERISED TOMOGRAM
     Route: 042
     Dates: start: 20071225, end: 20071225

REACTIONS (1)
  - LARYNGEAL OEDEMA [None]
